FAERS Safety Report 13813231 (Version 1)
Quarter: 2017Q3

REPORT INFORMATION
  Report Type: Spontaneous
  Country: TR (occurrence: TR)
  Receive Date: 20170729
  Receipt Date: 20170729
  Transmission Date: 20171127
  Serious: Yes (Hospitalization)
  Sender: FDA-Public Use
  Company Number: TR-UCBSA-2017029452

PATIENT
  Age: 7 Year
  Sex: Female

DRUGS (2)
  1. LEVETIRACETAM. [Suspect]
     Active Substance: LEVETIRACETAM
     Indication: SEIZURE
     Dosage: UNKNOWN DOSE
  2. LEVETIRACETAM. [Suspect]
     Active Substance: LEVETIRACETAM
     Dosage: 200 MG/KG (ON 10 OCCASIONS FOR 55 DAYS)

REACTIONS (1)
  - Accidental overdose [Unknown]
